FAERS Safety Report 10072158 (Version 1)
Quarter: 2014Q2

REPORT INFORMATION
  Report Type: Spontaneous
  Country: US (occurrence: US)
  Receive Date: 20140411
  Receipt Date: 20140411
  Transmission Date: 20141212
  Serious: No
  Sender: FDA-Public Use
  Company Number: US-009507513-1403USA014632

PATIENT
  Age: 17 Year
  Sex: Female
  Weight: 58.96 kg

DRUGS (1)
  1. NUVARING [Suspect]
     Indication: CONTRACEPTION
     Dosage: 25 DAYS IN 3 DAYS OUT
     Route: 067
     Dates: start: 201308

REACTIONS (2)
  - Coital bleeding [Unknown]
  - Inappropriate schedule of drug administration [Unknown]
